FAERS Safety Report 9659909 (Version 2)
Quarter: 2013Q4

REPORT INFORMATION
  Report Type: Spontaneous
  Country: DK (occurrence: DK)
  Receive Date: 20131031
  Receipt Date: 20131205
  Transmission Date: 20140711
  Serious: Yes (Disabling)
  Sender: FDA-Public Use
  Company Number: DK-SA-2013SA107714

PATIENT
  Sex: Female

DRUGS (13)
  1. TAXOTERE [Suspect]
     Indication: BREAST CANCER
     Route: 065
     Dates: start: 20120918, end: 20120918
  2. TAXOTERE [Suspect]
     Indication: BREAST CANCER
     Route: 065
     Dates: start: 20121011, end: 20121011
  3. TAXOTERE [Suspect]
     Indication: BREAST CANCER
     Route: 065
     Dates: start: 20121106, end: 20121106
  4. SINGULAIR [Concomitant]
     Indication: ASTHMA
  5. SYMBICORT [Concomitant]
     Indication: ASTHMA
     Dosage: 2-3 DOSE
  6. OXIS [Concomitant]
     Indication: ASTHMA
     Dosage: DOSE: PN
  7. BRICANYL [Concomitant]
     Indication: ASTHMA
     Dosage: DOSE: PN
  8. THEO-DUR [Concomitant]
     Indication: ASTHMA
     Dosage: DOSE: 300 MG PN
  9. PREDNISOLON [Concomitant]
     Indication: PREMEDICATION
     Dosage: FOR 3 DAYS TOGETHER WITH DOCETAXEL
  10. NEULASTA [Concomitant]
     Indication: COLONY STIMULATING FACTOR THERAPY
     Dosage: ON THE DAY FOLLOWING DOCETAXEL TREATMENT
     Route: 058
  11. PANODIL [Concomitant]
     Indication: PAIN
     Dosage: DOSE: PN
  12. IPREN [Concomitant]
     Indication: PAIN
     Dosage: DOSE: PN
  13. TRADOLAN [Concomitant]
     Indication: PAIN
     Dosage: DOSE: PN

REACTIONS (8)
  - Pain in extremity [Not Recovered/Not Resolved]
  - Sensory disturbance [Unknown]
  - Gait disturbance [Not Recovered/Not Resolved]
  - Amnesia [Not Recovered/Not Resolved]
  - Sensory disturbance [Recovered/Resolved]
  - Palpitations [Recovered/Resolved]
  - Fatigue [Recovered/Resolved]
  - Influenza like illness [Recovered/Resolved]
